FAERS Safety Report 18359574 (Version 1)
Quarter: 2020Q4

REPORT INFORMATION
  Report Type: Spontaneous
  Country: NL (occurrence: NL)
  Receive Date: 20201008
  Receipt Date: 20201008
  Transmission Date: 20210114
  Serious: Yes (Hospitalization)
  Sender: FDA-Public Use
  Company Number: NL-ACCORD-204493

PATIENT
  Age: 53 Year
  Sex: Female
  Weight: 117 kg

DRUGS (10)
  1. INSULIN [Concomitant]
     Active Substance: INSULIN NOS
     Dosage: 1 TIME DAILY 20 E
  2. HALDOL [Concomitant]
     Active Substance: HALOPERIDOL
     Dosage: TABLET, 10 MG (MILLIGRAM)
  3. LORAZEPAM. [Concomitant]
     Active Substance: LORAZEPAM
     Dosage: TABLET, 1 MG (MILLIGRAM)
  4. MACROGOL/MACROGOL STEARATE [Concomitant]
     Active Substance: POLYETHYLENE GLYCOLS
     Dosage: POWDER FOR ORAL SOLUTION
  5. ESCITALOPRAM [Suspect]
     Active Substance: ESCITALOPRAM OXALATE
     Indication: BIPOLAR DISORDER
     Dosage: 2 X PER DAY 1 PIECE, 10 MG
     Dates: start: 20200909
  6. BIPERIDEN [Concomitant]
     Active Substance: BIPERIDEN
     Dosage: TABLET, 2 MG (MILLIGRAM)
  7. PROMETHAZINE [Concomitant]
     Active Substance: PROMETHAZINE HYDROCHLORIDE
     Dosage: 25 MG (MILLIGRAM)
  8. XARELTO [Concomitant]
     Active Substance: RIVAROXABAN
  9. CLOZAPINE. [Concomitant]
     Active Substance: CLOZAPINE
     Dosage: TABLET, 100 MG (MILLIGRAM)
  10. CETOMACROGOL 1000/CHLOROCRESOL [Concomitant]
     Dosage: CREME

REACTIONS (2)
  - Cardiac arrest [Not Recovered/Not Resolved]
  - Bradycardia [Not Recovered/Not Resolved]

NARRATIVE: CASE EVENT DATE: 20200911
